FAERS Safety Report 4503807-5 (Version None)
Quarter: 2004Q4

REPORT INFORMATION
  Report Type: 
  Country: None (occurrence: None)
  Receive Date: 20041115
  Receipt Date: 20041102
  Transmission Date: 20050328
  Serious: Yes (Other)
  Sender: FDA-Public Use
  Company Number: 2004079584

PATIENT
  Age: 65 Year
  Sex: Female

DRUGS (5)
  1. LIPITOR [Suspect]
     Indication: HYPERLIPIDAEMIA
     Dosage: 20 MG (20 MG, 1 IN 1 D), ORAL
     Route: 048
  2. CELECOXIB (CELECOXIB) [Concomitant]
  3. IRBESARTAN (IRBERSARTAN) [Concomitant]
  4. LEVOTHYROXINE SODIUM [Concomitant]
  5. INDAPAMIDE [Concomitant]

REACTIONS (1)
  - ANGIONEUROTIC OEDEMA [None]
